FAERS Safety Report 21040226 (Version 1)
Quarter: 2022Q3

REPORT INFORMATION
  Report Type: Spontaneous
  Country: HR (occurrence: HR)
  Receive Date: 20220704
  Receipt Date: 20220704
  Transmission Date: 20221027
  Serious: Yes (Other)
  Sender: FDA-Public Use
  Company Number: None

PATIENT
  Age: 60 Year
  Sex: Male
  Weight: 90 kg

DRUGS (1)
  1. ACETAMINOPHEN [Suspect]
     Active Substance: ACETAMINOPHEN
     Indication: Product used for unknown indication
     Dosage: 10 G, QD
     Route: 048
     Dates: start: 202205, end: 202205

REACTIONS (9)
  - Coma [Unknown]
  - Disorientation [Unknown]
  - Suicide attempt [Unknown]
  - Vomiting [Unknown]
  - Sopor [Unknown]
  - Intentional overdose [Unknown]
  - Dyspnoea [Unknown]
  - Confusional state [Unknown]
  - Loss of consciousness [Unknown]

NARRATIVE: CASE EVENT DATE: 20220501
